FAERS Safety Report 7382380-0 (Version None)
Quarter: 2011Q1

REPORT INFORMATION
  Report Type: 
  Country: None (occurrence: None)
  Receive Date: 20110329
  Receipt Date: 20110307
  Transmission Date: 20110831
  Serious: Yes (Hospitalization, Other)
  Sender: FDA-Public Use
  Company Number: US-BAYER-2011-025262

PATIENT
  Sex: Female
  Weight: 102.4 kg

DRUGS (5)
  1. ALEVE (CAPLET) [Concomitant]
     Indication: ANALGESIC THERAPY
     Dosage: UNK UNK, PRN
  2. YAZ [Suspect]
     Indication: CONTRACEPTION
     Dosage: UNK
     Dates: start: 20070701, end: 20071001
  3. MIDRIN [Concomitant]
     Dosage: UNK
     Dates: start: 19900101
  4. DURADRIN [Concomitant]
  5. YASMIN [Suspect]
     Indication: HIRSUTISM
     Dosage: UNK
     Dates: start: 20011201, end: 20020401

REACTIONS (4)
  - PAIN [None]
  - BOWEL MOVEMENT IRREGULARITY [None]
  - GALLBLADDER DISORDER [None]
  - PANCREATITIS [None]
